FAERS Safety Report 21974662 (Version 1)
Quarter: 2023Q1

REPORT INFORMATION
  Report Type: Spontaneous
  Country: US (occurrence: None)
  Receive Date: 20230208
  Receipt Date: 20230208
  Transmission Date: 20230418
  Serious: Yes (Life-Threatening)
  Sender: FDA-Public Use
  Company Number: None

PATIENT
  Age: 60 Year
  Sex: Male
  Weight: 130.5 kg

DRUGS (12)
  1. KETAMINE [Suspect]
     Active Substance: KETAMINE
     Indication: Neuropathy peripheral
     Dosage: FREQUENCY : TWICE A DAY;?
     Route: 060
  2. ROSUVASTATIN [Concomitant]
     Active Substance: ROSUVASTATIN
  3. Ozmeprazole [Concomitant]
  4. ASPIRIN [Concomitant]
     Active Substance: ASPIRIN
  5. LOSARTAN [Concomitant]
  6. CLOPIDOGREL [Concomitant]
     Active Substance: CLOPIDOGREL BISULFATE
  7. NEXLIZET [Concomitant]
     Active Substance: BEMPEDOIC ACID\EZETIMIBE
  8. PREGABALIN [Concomitant]
     Active Substance: PREGABALIN
  9. SILODOSIN [Concomitant]
  10. CARVEDILOL [Concomitant]
     Active Substance: CARVEDILOL
  11. VITAMIN B12 [Concomitant]
     Active Substance: CYANOCOBALAMIN
  12. VITAMIN C [Concomitant]
     Active Substance: ASCORBIC ACID

REACTIONS (13)
  - Dysgeusia [None]
  - Product taste abnormal [None]
  - Overdose [None]
  - Mobility decreased [None]
  - Gait inability [None]
  - Nausea [None]
  - Vertigo [None]
  - Insomnia [None]
  - Dizziness [None]
  - Balance disorder [None]
  - Headache [None]
  - Product compounding quality issue [None]
  - Therapy interrupted [None]

NARRATIVE: CASE EVENT DATE: 20221202
